FAERS Safety Report 9913285 (Version 1)
Quarter: 2014Q1

REPORT INFORMATION
  Report Type: Spontaneous
  Country: US (occurrence: None)
  Receive Date: 20140214
  Receipt Date: 20140214
  Transmission Date: 20141002
  Serious: Yes (Other)
  Sender: FDA-Public Use
  Company Number: 2014AP001131

PATIENT
  Age: 44 Year
  Sex: Female

DRUGS (1)
  1. PAROXETINE HCL TABLETS [Suspect]
     Indication: PANIC DISORDER
     Dates: start: 20100425

REACTIONS (4)
  - Atypical pneumonia [None]
  - Nasopharyngitis [None]
  - Influenza [None]
  - Malaise [None]
